FAERS Safety Report 4765786-5 (Version None)
Quarter: 2005Q3

REPORT INFORMATION
  Report Type: 
  Country: None (occurrence: None)
  Receive Date: 20050906
  Receipt Date: 20050818
  Transmission Date: 20060218
  Serious: Yes (Hospitalization)
  Sender: FDA-Public Use
  Company Number: EWC050845503

PATIENT
  Age: 58 Year
  Sex: Male
  Weight: 100 kg

DRUGS (5)
  1. OLANZAPINE [Suspect]
     Indication: BIPOLAR DISORDER
     Dosage: 5 MG DAY
     Dates: start: 20040601, end: 20040601
  2. CLONAZEPAM [Concomitant]
  3. VALPROIC ACID [Concomitant]
  4. PREDNISONE [Concomitant]
  5. FLUNITRAZEPAM [Concomitant]

REACTIONS (9)
  - ASPARTATE AMINOTRANSFERASE INCREASED [None]
  - BLOOD CREATINE PHOSPHOKINASE INCREASED [None]
  - BLOOD LACTATE DEHYDROGENASE INCREASED [None]
  - CSF PROTEIN INCREASED [None]
  - DEMYELINATION [None]
  - GAMMA-GLUTAMYLTRANSFERASE INCREASED [None]
  - HYPERSENSITIVITY [None]
  - NEUROPATHY PERIPHERAL [None]
  - RASH [None]
